FAERS Safety Report 14660621 (Version 2)
Quarter: 2018Q3

REPORT INFORMATION
  Report Type: Spontaneous
  Country: FR (occurrence: FR)
  Receive Date: 20180320
  Receipt Date: 20180814
  Transmission Date: 20181010
  Serious: Yes (Death, Life-Threatening, Other)
  Sender: FDA-Public Use
  Company Number: FR-PFIZER INC-2018111127

PATIENT
  Age: 55 Year
  Sex: Male
  Weight: 108 kg

DRUGS (13)
  1. LACTATED RINGERS SOLUTION [Suspect]
     Active Substance: CALCIUM CHLORIDE\POTASSIUM CHLORIDE\SODIUM CHLORIDE\SODIUM LACTATE
     Indication: HYPOVOLAEMIA
     Dosage: 500 ML, UNK
     Route: 042
     Dates: start: 20171028, end: 20171028
  2. HYDROCORTISONE HEMISUCCINATE [Suspect]
     Active Substance: HYDROCORTISONE HEMISUCCINATE
     Indication: SHOCK
     Dosage: 200 MG, 1X/DAY
     Route: 042
     Dates: start: 20171023, end: 20171130
  3. MIDAZOLAM [Suspect]
     Active Substance: MIDAZOLAM HYDROCHLORIDE
     Indication: SEDATION
     Dosage: 20 MG, UNK
     Route: 042
     Dates: start: 20171023, end: 20171123
  4. PHOXILIUM [Suspect]
     Active Substance: CALCIUM CL\MAGNESIUM CL\POTASSIUM CL\SODIUM BICAR\SODIUM CL\SODIUM PHOSPHATE,DIB
     Indication: HAEMOFILTRATION
     Dosage: 2300 L, UNK
     Route: 042
     Dates: start: 20171024, end: 20171028
  5. PHOXILIUM [Suspect]
     Active Substance: CALCIUM CL\MAGNESIUM CL\POTASSIUM CL\SODIUM BICAR\SODIUM CL\SODIUM PHOSPHATE,DIB
     Dosage: UNK
  6. SUFENTA [Suspect]
     Active Substance: SUFENTANIL CITRATE
     Indication: SEDATION
     Dosage: 20 UG, UNK
     Route: 042
     Dates: start: 20171023, end: 20171123
  7. TAZOCILLINE [Suspect]
     Active Substance: PIPERACILLIN SODIUM\TAZOBACTAM SODIUM
     Indication: LUNG DISORDER
     Dosage: 12 G, 1X/DAY
     Route: 042
     Dates: start: 20171025, end: 20171101
  8. ADRENALINE /00003901/ [Suspect]
     Active Substance: EPINEPHRINE
     Indication: SHOCK
     Dosage: 2.5 MG, UNK
     Route: 042
     Dates: start: 20171023, end: 20171123
  9. HEMOSOL B0 [Suspect]
     Active Substance: CALCIUM CL\DEXTROSE\LACTIC ACID\MAGNESIUM CL\POTASSIUM CL\SODIUM BICAR\SODIUM CL
     Indication: HAEMOFILTRATION
     Dosage: UNK
     Route: 010
     Dates: start: 20171029
  10. KCL [Suspect]
     Active Substance: POTASSIUM CHLORIDE
     Indication: HAEMOFILTRATION
     Dosage: UNK
     Route: 010
     Dates: start: 20171029
  11. INEXIUM /01479302/ [Suspect]
     Active Substance: ESOMEPRAZOLE MAGNESIUM
     Indication: PROPHYLAXIS
     Dosage: 40 MG, 1X/DAY
     Route: 042
     Dates: start: 20171023, end: 20171130
  12. NORADRENALINE HOSPIRA [Suspect]
     Active Substance: NOREPINEPHRINE BITARTRATE
     Dosage: 4 MG, UNK
     Route: 042
     Dates: start: 20171023, end: 20171123
  13. PHOXILIUM [Suspect]
     Active Substance: CALCIUM CL\MAGNESIUM CL\POTASSIUM CL\SODIUM BICAR\SODIUM CL\SODIUM PHOSPHATE,DIB
     Dosage: UNK

REACTIONS (3)
  - Condition aggravated [Recovered/Resolved]
  - Death [Fatal]
  - Metabolic acidosis [Recovered/Resolved]

NARRATIVE: CASE EVENT DATE: 20171025
